FAERS Safety Report 18901969 (Version 1)
Quarter: 2021Q1

REPORT INFORMATION
  Report Type: Spontaneous
  Country: GB (occurrence: GB)
  Receive Date: 20210217
  Receipt Date: 20210217
  Transmission Date: 20210420
  Serious: Yes (Other)
  Sender: FDA-Public Use
  Company Number: GB-AUROBINDO-AUR-APL-2021-005072

PATIENT
  Age: 29 Year
  Sex: Male
  Weight: 83 kg

DRUGS (9)
  1. ZOPICLONE [Concomitant]
     Active Substance: ZOPICLONE
     Indication: PRODUCT USED FOR UNKNOWN INDICATION
     Dosage: 1 DOSAGE FORM, ONCE A DAY (AT BED TIME)
     Route: 065
     Dates: start: 20210104
  2. MIRTAZAPINE. [Concomitant]
     Active Substance: MIRTAZAPINE
     Dosage: 1 DOSAGE FORM, ONCE A DAY (AT BED TIME)
     Route: 065
     Dates: start: 20201127, end: 20210112
  3. CITALOPRAM [Suspect]
     Active Substance: CITALOPRAM HYDROBROMIDE
     Indication: PRODUCT USED FOR UNKNOWN INDICATION
     Dosage: 1 DOSAGE FORM, ONCE A DAY
     Route: 065
     Dates: start: 20201013
  4. DIAZEPAM. [Concomitant]
     Active Substance: DIAZEPAM
     Indication: MUSCLE SPASMS
     Dosage: 1 DOSAGE FORM, 3 TIMES A DAY
     Route: 065
     Dates: start: 20201102, end: 20201215
  5. FLUTICASONE. [Concomitant]
     Active Substance: FLUTICASONE
     Indication: PRODUCT USED FOR UNKNOWN INDICATION
     Dosage: TWO SPRAYS TO BE USED IN EACH NOSTRIL ONCE A DAY
     Route: 065
     Dates: start: 20201102, end: 20201217
  6. MIRTAZAPINE. [Concomitant]
     Active Substance: MIRTAZAPINE
     Dosage: 1 DOSAGE FORM, ONCE A DAY (AT BED TIME)
     Route: 065
     Dates: start: 20201221
  7. DIAZEPAM. [Concomitant]
     Active Substance: DIAZEPAM
     Dosage: 1 DOSAGE FORM, 3 TIMES A DAY
     Route: 065
     Dates: start: 20201231
  8. MIRTAZAPINE. [Concomitant]
     Active Substance: MIRTAZAPINE
     Indication: ANXIETY
     Dosage: 1 DOSAGE FORM, ONCE A DAY (AT BED TIME)
     Route: 065
     Dates: start: 20201028, end: 20201210
  9. SYMBICORT [Concomitant]
     Active Substance: BUDESONIDE\FORMOTEROL FUMARATE DIHYDRATE
     Indication: MIXED ANXIETY AND DEPRESSIVE DISORDER
     Dosage: ONE PUFF TO BE INHALED TWICE A DAY
     Route: 065
     Dates: start: 20210125

REACTIONS (2)
  - Dystonia [Unknown]
  - Facial spasm [Recovered/Resolved]

NARRATIVE: CASE EVENT DATE: 20201103
